FAERS Safety Report 6155052-8 (Version None)
Quarter: 2009Q2

REPORT INFORMATION
  Report Type: 
  Country: None (occurrence: None)
  Receive Date: 20090414
  Receipt Date: 20090330
  Transmission Date: 20091009
  Serious: Yes (Other)
  Sender: FDA-Public Use
  Company Number: VE-GENENTECH-280808

PATIENT

DRUGS (1)
  1. AVASTIN [Suspect]
     Indication: DIABETIC RETINOPATHY
     Dosage: 1.25 MG, UNK
     Route: 031

REACTIONS (2)
  - DISEASE PROGRESSION [None]
  - OPTIC ISCHAEMIC NEUROPATHY [None]
